FAERS Safety Report 25993328 (Version 1)
Quarter: 2025Q4

REPORT INFORMATION
  Report Type: Spontaneous
  Country: GB (occurrence: GB)
  Receive Date: 20251104
  Receipt Date: 20251104
  Transmission Date: 20260119
  Serious: Yes (Other)
  Sender: ROCHE
  Company Number: None

PATIENT
  Sex: Female

DRUGS (1)
  1. BEVACIZUMAB [Suspect]
     Active Substance: BEVACIZUMAB
     Indication: Colon cancer
     Route: 042

REACTIONS (2)
  - Neuropathy peripheral [Unknown]
  - Pain [Unknown]

NARRATIVE: CASE EVENT DATE: 20251030
